FAERS Safety Report 8284052-7 (Version None)
Quarter: 2012Q2

REPORT INFORMATION
  Report Type: 
  Country: None (occurrence: None)
  Receive Date: 20120413
  Receipt Date: 20110729
  Transmission Date: 20120825
  Serious: Yes (Other)
  Sender: FDA-Public Use
  Company Number: US-ASTRAZENECA-2011SE45520

PATIENT
  Age: 34 Year
  Sex: Female
  Weight: 56.7 kg

DRUGS (1)
  1. NEXIUM [Suspect]
     Route: 048
     Dates: start: 20110728, end: 20110729

REACTIONS (3)
  - HEADACHE [None]
  - DYSPNOEA [None]
  - SWELLING FACE [None]
